FAERS Safety Report 5950594-X (Version None)
Quarter: 2008Q4

REPORT INFORMATION
  Report Type: 
  Country: None (occurrence: None)
  Receive Date: 20081022
  Receipt Date: 20080612
  Transmission Date: 20090506
  Serious: No
  Sender: FDA-Public Use
  Company Number: ALL1-2008-01757

PATIENT
  Age: 27 Year
  Sex: Female
  Weight: 58.5 kg

DRUGS (4)
  1. VYVANSE [Suspect]
     Indication: ATTENTION DEFICIT/HYPERACTIVITY DISORDER
     Dates: start: 20080611
  2. ZYRTEC-D 12 HOUR [Concomitant]
  3. PROZAC /00724401/ (FLUOXETINE) [Concomitant]
  4. SINGULAIR /01362601/ (MONTELUKAST) [Concomitant]

REACTIONS (1)
  - JOINT CREPITATION [None]
